FAERS Safety Report 24795148 (Version 4)
Quarter: 2025Q3

REPORT INFORMATION
  Report Type: Spontaneous
  Country: JP (occurrence: JP)
  Receive Date: 20241231
  Receipt Date: 20250802
  Transmission Date: 20251021
  Serious: Yes (Hospitalization, Other)
  Sender: ALEXION PHARMACEUTICALS
  Company Number: JP-ASTRAZENECA-240147031_010520_P_1

PATIENT
  Age: 63 Year
  Sex: Female

DRUGS (7)
  1. FULVESTRANT [Suspect]
     Active Substance: FULVESTRANT
     Indication: Breast cancer
  2. FULVESTRANT [Suspect]
     Active Substance: FULVESTRANT
  3. FULVESTRANT [Suspect]
     Active Substance: FULVESTRANT
  4. TRUQAP [Suspect]
     Active Substance: CAPIVASERTIB
     Indication: Breast cancer
  5. TRUQAP [Suspect]
     Active Substance: CAPIVASERTIB
  6. TRUQAP [Suspect]
     Active Substance: CAPIVASERTIB
  7. TRUQAP [Suspect]
     Active Substance: CAPIVASERTIB

REACTIONS (9)
  - Erythema multiforme [Recovering/Resolving]
  - Conjunctival hyperaemia [Unknown]
  - Eye discharge [Unknown]
  - Lip swelling [Unknown]
  - Stomatitis [Unknown]
  - Oropharyngeal pain [Unknown]
  - Eosinophil count increased [Unknown]
  - Hepatic function abnormal [Unknown]
  - C-reactive protein increased [Unknown]

NARRATIVE: CASE EVENT DATE: 20240101
